FAERS Safety Report 5918896-0 (Version None)
Quarter: 2008Q3

REPORT INFORMATION
  Report Type: 
  Country: None (occurrence: None)
  Receive Date: 20080909
  Receipt Date: 20070814
  Transmission Date: 20090109
  Serious: Yes (Death)
  Sender: FDA-Public Use
  Company Number: 163-20785-07060557

PATIENT
  Age: 77 Year
  Sex: Male

DRUGS (2)
  1. THALOMID [Suspect]
     Indication: METASTASES TO LIVER
  2. THALOMID [Suspect]
     Indication: METASTATIC MALIGNANT MELANOMA

REACTIONS (2)
  - DRUG INEFFECTIVE [None]
  - NEOPLASM PROGRESSION [None]
